FAERS Safety Report 4168168 (Version 3)
Quarter: 2016Q1

REPORT INFORMATION
  Report Type: Spontaneous
  Country: US (occurrence: US)
  Receive Date: 20040714
  Receipt Date: 20160127
  Transmission Date: 20160526
  Serious: Yes (Congenital Anomaly, Other)
  Sender: FDA-Public Use
  Company Number: US-BRISTOL-MYERS SQUIBB COMPANY-12633269

PATIENT
  Age: 0 Day
  Sex: Male
  Weight: 2.89 kg

DRUGS (1)
  1. ABILIFY [Suspect]
     Active Substance: ARIPIPRAZOLE
     Indication: PRODUCT USED FOR UNKNOWN INDICATION
     Dosage: 50 MG, QD
     Route: 064

REACTIONS (4)
  - Neonatal disorder [Not Recovered/Not Resolved]
  - Breech presentation [Unknown]
  - Foetal exposure during pregnancy [Unknown]
  - Synostosis [Not Recovered/Not Resolved]

NARRATIVE: CASE EVENT DATE: 20031211
